FAERS Safety Report 6282660-6 (Version None)
Quarter: 2009Q3

REPORT INFORMATION
  Report Type: 
  Country: None (occurrence: None)
  Receive Date: 20090724
  Receipt Date: 20090715
  Transmission Date: 20100115
  Serious: Yes (Hospitalization, Disabling)
  Sender: FDA-Public Use
  Company Number: PHHY2009JP10273

PATIENT
  Sex: Male
  Weight: 49.76 kg

DRUGS (7)
  1. AMN107 AMN+CAP [Suspect]
     Indication: CHRONIC MYELOID LEUKAEMIA
     Dosage: 800 MG DAILY
     Route: 048
     Dates: start: 20090224, end: 20090316
  2. MUCOSTA [Concomitant]
     Dosage: 300 MG
     Route: 048
     Dates: start: 20090123
  3. HYDREA [Concomitant]
     Indication: CHRONIC MYELOID LEUKAEMIA
     Dosage: 1000 MG
     Route: 048
     Dates: start: 20090122, end: 20090223
  4. HYDREA [Concomitant]
     Dosage: 500 MG
     Route: 048
  5. HYDREA [Concomitant]
     Dosage: 1000 MG
     Dates: end: 20090223
  6. OMEPRAL [Concomitant]
     Dosage: 20 MG
     Route: 048
     Dates: start: 20090110
  7. BARACLUDE [Concomitant]
     Dosage: 0.5 MG
     Route: 048
     Dates: start: 20081114

REACTIONS (7)
  - ANAEMIA [None]
  - HYPERURICAEMIA [None]
  - LEUKOPENIA [None]
  - MALIGNANT NEOPLASM PROGRESSION [None]
  - NEUTROPENIA [None]
  - RENAL IMPAIRMENT [None]
  - THROMBOCYTOPENIA [None]
